FAERS Safety Report 18666137 (Version 1)
Quarter: 2020Q4

REPORT INFORMATION
  Report Type: Spontaneous
  Country: DE (occurrence: DE)
  Receive Date: 20201226
  Receipt Date: 20201226
  Transmission Date: 20210114
  Serious: Yes (Hospitalization)
  Sender: FDA-Public Use
  Company Number: DE-TEVA-2020-DE-1860868

PATIENT
  Age: 59 Year
  Sex: Female

DRUGS (13)
  1. PREGABALIN. [Concomitant]
     Active Substance: PREGABALIN
     Dosage: 150 MILLIGRAM DAILY;  1-0-1-0
  2. OXYCODONE [Concomitant]
     Active Substance: OXYCODONE
     Dosage: 20 MILLIGRAM DAILY;  1-0-1-0
  3. PANTOPRAZOL [Concomitant]
     Active Substance: PANTOPRAZOLE SODIUM
     Dosage: 40 MILLIGRAM DAILY;  1-0-1-0
  4. ASS 100 [Concomitant]
     Active Substance: ASPIRIN
     Dosage: 100 MILLIGRAM DAILY;  0-1-0-0
  5. PREDNISOLONE. [Suspect]
     Active Substance: PREDNISOLONE
     Dosage: 1.5 DOSAGE FORMS DAILY; 20 MG, 1.5-0-0-0
  6. METAMIZOL [Concomitant]
     Active Substance: METAMIZOLE SODIUM
     Dosage: 500 MG, REQUIREMENT, DROPS
  7. FORMOTEROL [Concomitant]
     Active Substance: FORMOTEROL
     Dosage: 24 MICROGRAM DAILY;  1-0-1-0, CAPSULES FOR INHALATION
     Route: 055
  8. BUDESONIDE. [Suspect]
     Active Substance: BUDESONIDE
     Dosage: 400 MICROGRAM DAILY;  1-0-1-0
     Route: 055
  9. BERODUAL [Concomitant]
     Active Substance: FENOTEROL HYDROBROMIDE\IPRATROPIUM BROMIDE
     Dosage: 1 DOSAGE FORMS ,50|20 UG
     Route: 055
  10. BRETARIS GENUAIR 322MIKROGRAMM [Concomitant]
     Dosage: 644 MICROGRAM DAILY; 1-0-1-0
     Route: 055
  11. KALIUM [Concomitant]
     Active Substance: POTASSIUM CHLORIDE
     Dosage: 1 DOSAGE FORMS DAILY; 1-0-0-0
  12. DAXAS [Concomitant]
     Active Substance: ROFLUMILAST
     Dosage: 500 MICROGRAM DAILY;  0-0-1-0
  13. ATORVASTATIN [Concomitant]
     Active Substance: ATORVASTATIN
     Dosage: 20 MILLIGRAM DAILY;   0-0-1-0

REACTIONS (1)
  - Dyspnoea [Unknown]

NARRATIVE: CASE EVENT DATE: 20201103
